FAERS Safety Report 6956226-6 (Version None)
Quarter: 2010Q3

REPORT INFORMATION
  Report Type: 
  Country: None (occurrence: None)
  Receive Date: 20100830
  Receipt Date: 20100728
  Transmission Date: 20110219
  Serious: No
  Sender: FDA-Public Use
  Company Number: US-BAYER-201018685BCC

PATIENT
  Age: 37 Year
  Sex: Male
  Weight: 61 kg

DRUGS (3)
  1. ALEVE (CAPLET) [Suspect]
     Indication: HEADACHE
     Dosage: TOTAL DAILY DOSE: 440 MG  UNIT DOSE: 220 MG
     Route: 048
     Dates: start: 20100727
  2. ASPIRIN [Suspect]
     Indication: HEADACHE
     Dosage: UNIT DOSE: 1 DF
     Route: 048
     Dates: start: 20100727
  3. VICKS DAYQUIL SINUS PRESSURE + PAIN RELIEF W/ IBUPROFEN [Concomitant]
     Route: 065

REACTIONS (1)
  - DRUG SCREEN POSITIVE [None]
